FAERS Safety Report 5853580-3 (Version None)
Quarter: 2008Q3

REPORT INFORMATION
  Report Type: 
  Country: None (occurrence: None)
  Receive Date: 20080822
  Receipt Date: 20080818
  Transmission Date: 20090109
  Serious: Yes (Life-Threatening, Hospitalization)
  Sender: FDA-Public Use
  Company Number: IT-JNJFOC-20080803726

PATIENT
  Age: 14 Year
  Sex: Male

DRUGS (2)
  1. ACETAMINOPHEN [Suspect]
  2. ACETAMINOPHEN [Suspect]
     Indication: DRUG USE FOR UNKNOWN INDICATION

REACTIONS (6)
  - ACUTE HEPATIC FAILURE [None]
  - BRAIN OEDEMA [None]
  - ENCEPHALOPATHY [None]
  - LIVER TRANSPLANT [None]
  - OVERDOSE [None]
  - SEPSIS [None]
